FAERS Safety Report 9345581 (Version 1)
Quarter: 2013Q2

REPORT INFORMATION
  Report Type: Spontaneous
  Country: US (occurrence: US)
  Receive Date: 20130613
  Receipt Date: 20130613
  Transmission Date: 20140414
  Serious: Yes (Other)
  Sender: FDA-Public Use
  Company Number: US-SANOFI-AVENTIS-2013SA057740

PATIENT
  Age: 66 Year
  Sex: Female

DRUGS (1)
  1. LANTUS [Suspect]

REACTIONS (6)
  - Thrombosis [Unknown]
  - Depression [Unknown]
  - Dysarthria [Unknown]
  - Somnolence [Unknown]
  - Visual impairment [Unknown]
  - Confusional state [Unknown]
